FAERS Safety Report 4268969-6 (Version None)
Quarter: 2004Q1

REPORT INFORMATION
  Report Type: 
  Country: None (occurrence: None)
  Receive Date: 20040109
  Receipt Date: 20031229
  Transmission Date: 20041129
  Serious: Yes (Hospitalization, Other)
  Sender: FDA-Public Use
  Company Number: 200314825BCC

PATIENT
  Age: 61 Year
  Sex: Female
  Weight: 53.5244 kg

DRUGS (17)
  1. ALEVE [Suspect]
     Indication: PAIN IN EXTREMITY
     Dosage: 220 MG, PRN, ORAL
     Route: 048
     Dates: start: 20031001, end: 20031108
  2. INTERFERON GAMMA-1B [Suspect]
     Dosage: TIW, SUBCUTANEOUS
     Route: 058
     Dates: start: 20030929, end: 20031107
  3. VALIUM [Concomitant]
  4. LORTAB [Concomitant]
  5. ZOCOR [Concomitant]
  6. PREMARIN [Concomitant]
  7. ASPIRIN [Concomitant]
  8. COUMADIN [Concomitant]
  9. COMPAZINE [Concomitant]
  10. ZOFRAN [Concomitant]
  11. KYTRIL [Concomitant]
  12. DECADRON [Concomitant]
  13. TAGAMET [Concomitant]
  14. CARBOPLATIN [Concomitant]
  15. PACLITAXEL [Concomitant]
  16. BENADRYL [Concomitant]
  17. METAMUCIL-2 [Concomitant]

REACTIONS (17)
  - BLOOD PRESSURE SYSTOLIC DECREASED [None]
  - CONTUSION [None]
  - DYSGEUSIA [None]
  - FALL [None]
  - HEAD INJURY [None]
  - HYPERSENSITIVITY [None]
  - HYPOAESTHESIA [None]
  - HYPOAESTHESIA ORAL [None]
  - PARAESTHESIA [None]
  - PRURITUS [None]
  - PULSE ABSENT [None]
  - RASH [None]
  - SKIN LACERATION [None]
  - SWELLING [None]
  - SWOLLEN TONGUE [None]
  - URTICARIA [None]
  - VOMITING [None]
